FAERS Safety Report 19057205 (Version 1)
Quarter: 2021Q1

REPORT INFORMATION
  Report Type: Spontaneous
  Country: GB (occurrence: GB)
  Receive Date: 20210325
  Receipt Date: 20210325
  Transmission Date: 20210420
  Serious: Yes (Hospitalization, Disabling, Other)
  Sender: FDA-Public Use
  Company Number: GB-PFIZER INC-2021290310

PATIENT
  Age: 19 Year
  Sex: Female
  Weight: 50 kg

DRUGS (9)
  1. SERTRALINE HCL [Suspect]
     Active Substance: SERTRALINE HYDROCHLORIDE
     Indication: DEPRESSION
     Dosage: 50 MG
     Route: 048
  2. PARACETAMOL [Concomitant]
     Active Substance: ACETAMINOPHEN
     Indication: ILL-DEFINED DISORDER
     Dosage: UNK
  3. SERTRALINE HCL [Suspect]
     Active Substance: SERTRALINE HYDROCHLORIDE
     Indication: ANXIETY
  4. LEVEST [ETHINYLESTRADIOL;LEVONORGESTREL] [Concomitant]
     Indication: ILL-DEFINED DISORDER
     Dosage: UNK
  5. SERTRALINE HCL [Suspect]
     Active Substance: SERTRALINE HYDROCHLORIDE
     Indication: OBSESSIVE-COMPULSIVE DISORDER
  6. SERTRALINE HCL [Suspect]
     Active Substance: SERTRALINE HYDROCHLORIDE
     Indication: POST-TRAUMATIC STRESS DISORDER
  7. IBUPROFEN. [Concomitant]
     Active Substance: IBUPROFEN
     Indication: ILL-DEFINED DISORDER
     Dosage: UNK
  8. NICOTINE. [Concomitant]
     Active Substance: NICOTINE
     Indication: ILL-DEFINED DISORDER
     Dosage: UNK
  9. CAFFEINE. [Concomitant]
     Active Substance: CAFFEINE
     Indication: ILL-DEFINED DISORDER
     Dosage: UNK

REACTIONS (13)
  - Malaise [Recovered/Resolved]
  - Feeling abnormal [Not Recovered/Not Resolved]
  - Migraine [Recovered/Resolved]
  - Arthralgia [Not Recovered/Not Resolved]
  - Anorgasmia [Not Recovered/Not Resolved]
  - Somnolence [Not Recovered/Not Resolved]
  - Dissociation [Not Recovered/Not Resolved]
  - Depression suicidal [Not Recovered/Not Resolved]
  - Pruritus [Recovered/Resolved]
  - Hypoaesthesia [Recovered/Resolved]
  - Apathy [Not Recovered/Not Resolved]
  - Visual impairment [Recovered/Resolved]
  - Decreased appetite [Recovering/Resolving]
